FAERS Safety Report 22340530 (Version 1)
Quarter: 2023Q2

REPORT INFORMATION
  Report Type: Spontaneous
  Country: US (occurrence: US)
  Receive Date: 20230518
  Receipt Date: 20230518
  Transmission Date: 20230722
  Serious: No
  Sender: FDA-Public Use
  Company Number: US-SANOFI-01615039

PATIENT
  Sex: Female

DRUGS (1)
  1. ALLEGRA ALLERGY [Suspect]
     Active Substance: FEXOFENADINE HYDROCHLORIDE
     Dosage: UNK
     Route: 065
     Dates: start: 20230510

REACTIONS (4)
  - Vomiting [Unknown]
  - Diarrhoea [Unknown]
  - Palpitations [Unknown]
  - Nervousness [Unknown]

NARRATIVE: CASE EVENT DATE: 20230513
